FAERS Safety Report 11014595 (Version 2)
Quarter: 2015Q2

REPORT INFORMATION
  Report Type: Spontaneous
  Country: US (occurrence: US)
  Receive Date: 20150412
  Receipt Date: 20150525
  Transmission Date: 20150821
  Serious: No
  Sender: FDA-Public Use
  Company Number: US-JNJFOC-20130803858

PATIENT
  Age: 15 Year
  Sex: Male

DRUGS (2)
  1. ULTRAM [Suspect]
     Active Substance: TRAMADOL HYDROCHLORIDE
     Indication: MENINGITIS BACTERIAL
     Route: 042
  2. ULTRAM [Suspect]
     Active Substance: TRAMADOL HYDROCHLORIDE
     Indication: MENINGITIS BACTERIAL
     Dosage: THRICE A DAY
     Route: 042

REACTIONS (2)
  - Incorrect dose administered [Unknown]
  - Wrong patient received medication [Unknown]
